FAERS Safety Report 6842725-4 (Version None)
Quarter: 2010Q3

REPORT INFORMATION
  Report Type: 
  Country: None (occurrence: None)
  Receive Date: 20100714
  Receipt Date: 20071212
  Transmission Date: 20110219
  Serious: Yes (Other)
  Sender: FDA-Public Use
  Company Number: US-PFIZER INC-2007065606

PATIENT
  Sex: Female
  Weight: 53.5 kg

DRUGS (10)
  1. CHANTIX [Suspect]
     Indication: SMOKING CESSATION THERAPY
     Route: 048
     Dates: start: 20070701, end: 20070805
  2. LOTREL [Concomitant]
  3. GEMFIBROZIL [Concomitant]
  4. MONTEKULAST SODIUM [Concomitant]
  5. SPIRIVA [Concomitant]
  6. XOPENEX [Concomitant]
  7. FLOVENT [Concomitant]
  8. ALBUTEROL [Concomitant]
  9. PREDNISONE TAB [Concomitant]
  10. PROTONIX [Concomitant]

REACTIONS (1)
  - DIZZINESS [None]
